FAERS Safety Report 4895273-5 (Version None)
Quarter: 2006Q1

REPORT INFORMATION
  Report Type: 
  Country: None (occurrence: None)
  Receive Date: 20060130
  Receipt Date: 20060125
  Transmission Date: 20060701
  Serious: Yes (Hospitalization)
  Sender: FDA-Public Use
  Company Number: IT-GLAXOSMITHKLINE-B0408241A

PATIENT
  Age: 41 Year
  Sex: Female

DRUGS (2)
  1. AMOXICILLIN AND CLAVULANATE POTASSIUM [Suspect]
     Indication: TOOTH ABSCESS
     Route: 048
     Dates: start: 20060111, end: 20060114
  2. CEFTRIAXONE [Concomitant]
     Route: 030
     Dates: start: 20060114

REACTIONS (1)
  - RASH PUSTULAR [None]
